FAERS Safety Report 24812920 (Version 4)
Quarter: 2025Q4

REPORT INFORMATION
  Report Type: Report from Study
  Country: EU (occurrence: EU)
  Receive Date: 20250107
  Receipt Date: 20251117
  Transmission Date: 20260117
  Serious: Yes (Hospitalization, Other)
  Sender: ABBVIE
  Company Number: EU-ABBVIE-6071046

PATIENT
  Sex: Female

DRUGS (1)
  1. FOSCARBIDOPA\FOSLEVODOPA [Suspect]
     Active Substance: FOSCARBIDOPA\FOSLEVODOPA
     Indication: Parkinson^s disease
     Dosage: SD 0.35 ML, CRN 0.20 ML/H, CR 0.40 ML/H, CRH 0.43 ML/H, ED 0.15 ML
     Route: 058
     Dates: start: 20240117

REACTIONS (3)
  - Abdominal wall abscess [Recovered/Resolved]
  - Mobility decreased [Not Recovered/Not Resolved]
  - Dysphagia [Not Recovered/Not Resolved]
